FAERS Safety Report 5815186-1 (Version None)
Quarter: 2008Q3

REPORT INFORMATION
  Report Type: 
  Country: None (occurrence: None)
  Receive Date: 20080718
  Receipt Date: 20080710
  Transmission Date: 20090109
  Serious: Yes (Other)
  Sender: FDA-Public Use
  Company Number: JP-BRISTOL-MYERS SQUIBB COMPANY-14245344

PATIENT
  Age: 34 Year
  Sex: Female

DRUGS (4)
  1. ABILIFY [Suspect]
     Indication: SCHIZOPHRENIA
     Dosage: 11JUN07-19JUL07:12MG,39DAYS.INCREASED 20JUL07-21OCT07:18MG,94DAYS.DECREASED 22OCT07-ONGOING:12MG
     Route: 048
     Dates: start: 20070611
  2. RISPERDAL [Concomitant]
  3. FLUVOXAMINE MALEATE [Concomitant]
     Dosage: FORM:TABLET
     Dates: end: 20071021
  4. SENNOSIDE [Concomitant]
     Dosage: FORM:SENNARIDE TABLET
     Dates: end: 20070903

REACTIONS (2)
  - ASOCIAL BEHAVIOUR [None]
  - SLEEP DISORDER [None]
